FAERS Safety Report 19670403 (Version 1)
Quarter: 2021Q3

REPORT INFORMATION
  Report Type: Spontaneous
  Country: US (occurrence: US)
  Receive Date: 20210806
  Receipt Date: 20210806
  Transmission Date: 20211014
  Serious: Yes (Hospitalization)
  Sender: FDA-Public Use
  Company Number: US-SAOL THERAPEUTICS-2021SAO00154

PATIENT
  Age: 47 Year
  Sex: Female

DRUGS (2)
  1. LIORESAL [Suspect]
     Active Substance: BACLOFEN
     Dosage: UNK; DOSE DECREASED BY 50%
     Route: 037
     Dates: start: 20210417
  2. LIORESAL [Suspect]
     Active Substance: BACLOFEN
     Dosage: 306 ?G, \DAY
     Route: 037
     Dates: end: 20210417

REACTIONS (1)
  - Toxicity to various agents [Recovering/Resolving]

NARRATIVE: CASE EVENT DATE: 20210417
